FAERS Safety Report 8721498 (Version 3)
Quarter: 2012Q4

REPORT INFORMATION
  Report Type: 
  Country: US (occurrence: US)
  Receive Date: 20120813
  Receipt Date: 20121026
  Transmission Date: 20130627
  Serious: Yes (Other)
  Sender: FDA-Public Use
  Company Number: US-BAYER-2012-080784

PATIENT
  Age: 29 Year
  Sex: Female
  Weight: 70.3 kg

DRUGS (4)
  1. MIRENA [Suspect]
     Indication: CONTRACEPTION
     Dosage: 20 mcg/24hr, CONT
     Route: 015
     Dates: start: 20111010
  2. KLONOPIN [Concomitant]
     Dosage: UNK UNK, PRN
  3. ESKALITH [Concomitant]
  4. SEROQUEL [Concomitant]

REACTIONS (4)
  - Device dislocation [None]
  - Genital haemorrhage [None]
  - Pregnancy with contraceptive device [Unknown]
  - Abdominal pain [None]
